FAERS Safety Report 9213170 (Version 1)
Quarter: 2013Q2

REPORT INFORMATION
  Report Type: Spontaneous
  Country: IT (occurrence: IT)
  Receive Date: 20130405
  Receipt Date: 20130405
  Transmission Date: 20140414
  Serious: Yes (Hospitalization)
  Sender: FDA-Public Use
  Company Number: IT-JNJFOC-20130317628

PATIENT
  Age: 37 Year
  Sex: Male

DRUGS (2)
  1. HALDOL [Suspect]
     Indication: PSYCHIATRIC SYMPTOM
     Route: 048
     Dates: start: 20130304, end: 20130304
  2. AKINETON [Suspect]
     Indication: PSYCHIATRIC SYMPTOM
     Route: 048
     Dates: start: 20130304, end: 20130304

REACTIONS (3)
  - Blood pressure increased [Recovering/Resolving]
  - Bradyphrenia [Recovering/Resolving]
  - Sopor [Recovering/Resolving]
